FAERS Safety Report 9074398 (Version 1)
Quarter: 2013Q1

REPORT INFORMATION
  Report Type: Report from Study
  Country: US (occurrence: US)
  Receive Date: 20130128
  Receipt Date: 20130128
  Transmission Date: 20140127
  Serious: No
  Sender: FDA-Public Use
  Company Number: US-ABBOTT-12P-163-0913006-00

PATIENT
  Age: 36 Year
  Sex: Female

DRUGS (6)
  1. HUMIRA 40 MG/0.8 ML PEN [Suspect]
     Indication: ANKYLOSING SPONDYLITIS
     Dates: start: 20120215
  2. HYDROXY-HCL [Concomitant]
     Indication: ANXIETY
  3. LORZONE [Concomitant]
     Indication: PRODUCT USED FOR UNKNOWN INDICATION
  4. METHOTREXATE [Concomitant]
     Indication: ANKYLOSING SPONDYLITIS
  5. OXYCODONE [Concomitant]
     Indication: PAIN
  6. XANAX [Concomitant]
     Indication: ANXIETY

REACTIONS (1)
  - Sinusitis [Not Recovered/Not Resolved]
